FAERS Safety Report 7229430-X (Version None)
Quarter: 2011Q1

REPORT INFORMATION
  Report Type: 
  Country: None (occurrence: None)
  Receive Date: 20110117
  Receipt Date: 20110111
  Transmission Date: 20110831
  Serious: Yes (Death)
  Sender: FDA-Public Use
  Company Number: B0690797A

PATIENT
  Sex: Female
  Weight: 45 kg

DRUGS (33)
  1. MEROPENEM [Concomitant]
     Route: 042
     Dates: start: 20070228, end: 20070318
  2. VANCOMYCIN [Concomitant]
     Dosage: 1G PER DAY
     Route: 042
     Dates: start: 20070124, end: 20070202
  3. FUNGUARD [Concomitant]
     Route: 042
     Dates: start: 20070219, end: 20070318
  4. MEROPENEM [Concomitant]
     Dosage: 1G PER DAY
     Route: 042
     Dates: start: 20070120, end: 20070220
  5. SOLU-MEDROL [Concomitant]
     Route: 042
     Dates: start: 20070307, end: 20070320
  6. AMBISOME [Concomitant]
     Dosage: 50MG PER DAY
     Route: 042
     Dates: start: 20070319, end: 20070322
  7. BIOFERMIN [Concomitant]
     Dosage: 3G PER DAY
     Route: 048
     Dates: start: 20070222, end: 20070228
  8. FLAGYL [Concomitant]
     Dosage: 750MG PER DAY
     Route: 048
     Dates: start: 20070224, end: 20070228
  9. CYCLOSPORINE [Suspect]
     Indication: IMMUNOSUPPRESSION
     Route: 065
     Dates: start: 20070224, end: 20070316
  10. NEUTROGIN [Concomitant]
     Dosage: 250MCG PER DAY
     Dates: start: 20070304, end: 20070322
  11. BAKTAR [Concomitant]
     Dosage: 4IUAX PER DAY
     Route: 048
     Dates: start: 20070124, end: 20070207
  12. VANCOMYCIN [Concomitant]
     Dosage: 1.5G PER DAY
     Route: 048
     Dates: start: 20070203, end: 20070218
  13. GASTER D [Concomitant]
     Dosage: 20MG PER DAY
     Route: 048
     Dates: start: 20061030, end: 20070307
  14. ALKERAN [Suspect]
     Indication: ALLOGENIC BONE MARROW TRANSPLANTATION THERAPY
     Dosage: 70MG PER DAY
     Route: 042
     Dates: start: 20070222, end: 20070223
  15. FLUDARABINE PHOSPHATE [Concomitant]
     Indication: ALLOGENIC BONE MARROW TRANSPLANTATION THERAPY
     Dosage: 40MG PER DAY
     Route: 042
     Dates: start: 20070219, end: 20070223
  16. SOLU-MEDROL [Concomitant]
     Indication: IMMUNOSUPPRESSION
     Route: 042
     Dates: start: 20070307, end: 20070320
  17. VANCOMYCIN [Concomitant]
     Dosage: 1.5G PER DAY
     Route: 048
     Dates: start: 20070228, end: 20070307
  18. NEUART [Concomitant]
     Dosage: 1.5IU3 PER DAY
     Route: 042
     Dates: start: 20070119, end: 20070122
  19. CRAVIT [Concomitant]
     Dosage: 300MG PER DAY
     Route: 048
     Dates: start: 20070219, end: 20070228
  20. ORGARAN [Concomitant]
     Dosage: 2.5IU3 PER DAY
     Route: 042
     Dates: start: 20070302, end: 20070303
  21. DALACIN [Concomitant]
     Dates: start: 20070120, end: 20070127
  22. ZOVIRAX [Concomitant]
     Dosage: 1000MG PER DAY
     Route: 048
     Dates: start: 20070224, end: 20070306
  23. MAXIPIME [Concomitant]
     Route: 042
     Dates: start: 20070319, end: 20070322
  24. NEUTROGIN [Concomitant]
     Dosage: 250MCG PER DAY
     Dates: start: 20070118, end: 20070125
  25. AMBISOME [Concomitant]
     Dosage: 50MG PER DAY
     Route: 042
     Dates: start: 20070319, end: 20070322
  26. CRAVIT [Concomitant]
     Dosage: 300MG PER DAY
     Route: 048
     Dates: start: 20070118, end: 20070129
  27. VICCLOX [Concomitant]
     Dosage: 250MG PER DAY
     Route: 042
     Dates: start: 20070307, end: 20070320
  28. MIRACLID [Concomitant]
     Dosage: 200IU3 PER DAY
     Route: 042
     Dates: start: 20070310, end: 20070312
  29. THIOTEPA [Concomitant]
     Indication: ALLOGENIC BONE MARROW TRANSPLANTATION THERAPY
     Dosage: 205MG PER DAY
     Dates: start: 20070216, end: 20070217
  30. NEUTROGIN [Concomitant]
     Dosage: 250MCG PER DAY
     Dates: start: 20061130, end: 20071212
  31. NEOPHAGEN C [Concomitant]
     Dosage: 60ML PER DAY
     Route: 042
     Dates: start: 20070208, end: 20070305
  32. ZYVOX [Concomitant]
     Dosage: 600MG PER DAY
     Route: 042
     Dates: start: 20070312, end: 20070322
  33. HANP [Concomitant]
     Dosage: 1000MCG PER DAY
     Route: 042
     Dates: start: 20070318, end: 20070322

REACTIONS (9)
  - FUNGAEMIA [None]
  - RENAL FAILURE [None]
  - CIRCULATORY COLLAPSE [None]
  - INFECTION [None]
  - BRAIN STEM HAEMORRHAGE [None]
  - RESPIRATORY FAILURE [None]
  - VENOOCCLUSIVE LIVER DISEASE [None]
  - MULTI-ORGAN FAILURE [None]
  - STAPHYLOCOCCAL SEPSIS [None]
